FAERS Safety Report 13570987 (Version 1)
Quarter: 2017Q2

REPORT INFORMATION
  Report Type: Spontaneous
  Country: US (occurrence: US)
  Receive Date: 20170523
  Receipt Date: 20170523
  Transmission Date: 20170830
  Serious: No
  Sender: FDA-Public Use
  Company Number: US-TEVA-764574USA

PATIENT
  Sex: Male
  Weight: 59.02 kg

DRUGS (7)
  1. FENTORA [Suspect]
     Active Substance: FENTANYL CITRATE
     Indication: NECK PAIN
     Route: 065
     Dates: end: 201702
  2. TOVIAZ [Concomitant]
     Active Substance: FESOTERODINE FUMARATE
  3. FENTORA [Suspect]
     Active Substance: FENTANYL CITRATE
     Indication: NECK PAIN
     Route: 065
     Dates: start: 2009
  4. OPANA ER [Concomitant]
     Active Substance: OXYMORPHONE HYDROCHLORIDE
  5. TAZEPAM [Concomitant]
     Active Substance: OXAZEPAM
  6. CYMBALTA [Concomitant]
     Active Substance: DULOXETINE HYDROCHLORIDE
  7. OXYCODONE [Concomitant]
     Active Substance: OXYCODONE

REACTIONS (3)
  - Withdrawal syndrome [Not Recovered/Not Resolved]
  - Product use in unapproved indication [Unknown]
  - Neck pain [Not Recovered/Not Resolved]

NARRATIVE: CASE EVENT DATE: 2009
